FAERS Safety Report 22911451 (Version 2)
Quarter: 2023Q4

REPORT INFORMATION
  Report Type: Spontaneous
  Country: DK (occurrence: None)
  Receive Date: 20230906
  Receipt Date: 20231102
  Transmission Date: 20240110
  Serious: Yes (Other)
  Sender: FDA-Public Use
  Company Number: DK-ROCHE-3412567

PATIENT
  Age: 31 Year
  Sex: Male

DRUGS (1)
  1. COLUMVI [Suspect]
     Active Substance: GLOFITAMAB-GXBM
     Indication: Burkitt^s lymphoma
     Dosage: 2.5 MG ON DAY 8, 10 MG ON DAY 15. THE WEEK AFTER 10 MG AND THEN 30 MG EVERY 3 WEEKS.
     Route: 065
     Dates: start: 20230823

REACTIONS (4)
  - Off label use [Unknown]
  - Cytokine release syndrome [Unknown]
  - Tumour flare [Unknown]
  - Hepatitis E [Unknown]
